FAERS Safety Report 10663225 (Version 1)
Quarter: 2014Q4

REPORT INFORMATION
  Report Type: Spontaneous
  Country: US (occurrence: US)
  Receive Date: 20141218
  Receipt Date: 20141218
  Transmission Date: 20150529
  Serious: No
  Sender: FDA-Public Use
  Company Number: US-GILEAD-2014-0128092

PATIENT
  Sex: Female

DRUGS (3)
  1. RANEXA [Suspect]
     Active Substance: RANOLAZINE
     Indication: DYSPNOEA
     Dosage: 500 MG, UNK
     Route: 065
  2. RANEXA [Suspect]
     Active Substance: RANOLAZINE
     Indication: DEPRESSION
  3. RANEXA [Suspect]
     Active Substance: RANOLAZINE
     Indication: BIPOLAR DISORDER

REACTIONS (2)
  - Dyspnoea [Unknown]
  - Off label use [Unknown]
